FAERS Safety Report 10067338 (Version 3)
Quarter: 2014Q2

REPORT INFORMATION
  Report Type: Spontaneous
  Country: IT (occurrence: IT)
  Receive Date: 20140409
  Receipt Date: 20140415
  Transmission Date: 20141212
  Serious: Yes (Hospitalization)
  Sender: FDA-Public Use
  Company Number: IT-ACCORD-022561

PATIENT
  Age: 67 Year
  Sex: Male

DRUGS (4)
  1. IRINOTECAN [Suspect]
     Indication: RECTAL CANCER STAGE IV
     Route: 042
     Dates: start: 20131202
  2. PARACETAMOL [Concomitant]
     Indication: PREMEDICATION
     Dosage: 1 TABLET
  3. ERBITUX [Suspect]
     Indication: COLON CANCER
     Route: 042
     Dates: start: 20130902, end: 20140303
  4. OXALIPLATIN [Suspect]
     Indication: COLON CANCER
     Dates: start: 20130209, end: 20140303

REACTIONS (6)
  - Hyperpyrexia [Recovered/Resolved]
  - Nasopharyngitis [Recovered/Resolved]
  - Atrial fibrillation [Recovered/Resolved]
  - Chills [Recovered/Resolved]
  - Palpitations [Recovered/Resolved]
  - Hyperhidrosis [Recovered/Resolved]
